FAERS Safety Report 5307018-5 (Version None)
Quarter: 2007Q2

REPORT INFORMATION
  Report Type: 
  Country: None (occurrence: None)
  Receive Date: 20070425
  Receipt Date: 20070416
  Transmission Date: 20071010
  Serious: Yes (Hospitalization)
  Sender: FDA-Public Use
  Company Number: FR-JNJFOC-20070404717

PATIENT
  Age: 39 Year
  Sex: Male

DRUGS (5)
  1. TRAMADOL HCL [Suspect]
     Indication: DRUG USE FOR UNKNOWN INDICATION
     Route: 042
     Dates: start: 20070222, end: 20070305
  2. LAROXYL [Suspect]
     Indication: NEURALGIA
     Route: 042
     Dates: start: 20070301, end: 20070309
  3. ORBENIN CAP [Suspect]
     Indication: STAPHYLOCOCCAL INFECTION
     Route: 042
  4. SOLUPRED [Concomitant]
     Route: 048
  5. OFLOCET [Concomitant]
     Indication: STAPHYLOCOCCAL INFECTION
     Route: 042
     Dates: start: 20070219, end: 20070310

REACTIONS (1)
  - AGRANULOCYTOSIS [None]
